FAERS Safety Report 21447664 (Version 3)
Quarter: 2023Q1

REPORT INFORMATION
  Report Type: Spontaneous
  Country: US (occurrence: US)
  Receive Date: 20221012
  Receipt Date: 20230214
  Transmission Date: 20230417
  Serious: Yes (Hospitalization)
  Sender: FDA-Public Use
  Company Number: US-BRISTOL-MYERS SQUIBB COMPANY-2022-118397

PATIENT
  Age: 81 Year
  Sex: Female

DRUGS (24)
  1. ELIQUIS [Suspect]
     Active Substance: APIXABAN
     Indication: Product used for unknown indication
     Route: 048
     Dates: start: 20220408
  2. AMOXIL [Concomitant]
     Active Substance: AMOXICILLIN
     Indication: Product used for unknown indication
     Route: 048
     Dates: start: 20220425
  3. CATAPRES [Concomitant]
     Active Substance: CLONIDINE HYDROCHLORIDE
     Indication: Blood pressure measurement
     Dosage: TAKE 1 TABLET BY MOUTH FOR BLOOD PRESSURE 160/90 OR GREATER AS NEEDED ONLY.
     Route: 048
     Dates: start: 20220111
  4. VITAMIN B12 [Concomitant]
     Active Substance: CYANOCOBALAMIN
     Indication: Product used for unknown indication
     Dosage: TAKE 1000 MCG INTRAMUSCULARLY INTO THE MUSCLE ONCE MONTHLY.
     Route: 030
     Dates: start: 20221018
  5. DECARA [COLECALCIFEROL] [Concomitant]
     Indication: Product used for unknown indication
     Route: 048
     Dates: start: 20221025
  6. LASIX [Concomitant]
     Active Substance: FUROSEMIDE
     Indication: Product used for unknown indication
     Route: 048
     Dates: start: 20211229
  7. ANUSOL HC [Concomitant]
     Active Substance: HYDROCORTISONE
     Indication: Product used for unknown indication
     Route: 054
     Dates: start: 20220128
  8. IMDUR [Concomitant]
     Active Substance: ISOSORBIDE MONONITRATE
     Indication: Product used for unknown indication
     Dosage: IMDUR 30 MG ORAL EXTENDED RELEASE TABLET. PATIENT IS ONLY TAKING HALF TABLET.
     Route: 048
  9. LEVOTHYROXINE [Concomitant]
     Active Substance: LEVOTHYROXINE
     Indication: Product used for unknown indication
     Route: 048
     Dates: start: 20220908
  10. CYTOMEL [Concomitant]
     Active Substance: LIOTHYRONINE SODIUM
     Indication: Product used for unknown indication
     Route: 048
     Dates: start: 20220831
  11. MELATIN [Concomitant]
     Indication: Product used for unknown indication
     Dosage: TAKE 3 MG BY MOUTH AT BEDTIME.
     Route: 048
  12. TOPROL XL [Concomitant]
     Active Substance: METOPROLOL SUCCINATE
     Indication: Product used for unknown indication
     Dosage: TOPROL XL 25 MG EXTENDED-RELEASE TABLET.
     Route: 048
     Dates: start: 20220104
  13. TOPROL XL [Concomitant]
     Active Substance: METOPROLOL SUCCINATE
     Dosage: TOPROL XL 25 MG EXTENDED-RELEASE TABLET.
     Route: 048
     Dates: start: 20220104
  14. MACRODANTIN [Concomitant]
     Active Substance: NITROFURANTOIN
     Indication: Product used for unknown indication
     Route: 048
     Dates: start: 20220908
  15. NITROSTAT [Concomitant]
     Active Substance: NITROGLYCERIN
     Indication: Chest pain
     Dosage: PLACE ONE TABLET UNDER THE TONGUE  EVERY 5 MINUTES AS NEEDED FOR CHEST PAIN.
     Route: 048
     Dates: start: 20211115
  16. TYLENOL [Concomitant]
     Active Substance: ACETAMINOPHEN
     Indication: Product used for unknown indication
     Route: 048
  17. FOSAMAX [Concomitant]
     Active Substance: ALENDRONATE SODIUM
     Indication: Product used for unknown indication
     Dosage: TAKE 1 TABLET BY MOUTH ONCE WEEKLY IN THE MORNING AT LEAST 30 MINUTES BEFORE THE FIRST FOOD, BEVERAG
     Route: 048
     Dates: start: 20230111
  18. NORVASC [Concomitant]
     Active Substance: AMLODIPINE BESYLATE
     Indication: Product used for unknown indication
     Route: 048
     Dates: start: 20221028
  19. LIPITOR [Concomitant]
     Active Substance: ATORVASTATIN CALCIUM
     Indication: Product used for unknown indication
     Dosage: TAKE 1 TABLET BY MOUTH AT BED TIME.
     Route: 048
     Dates: start: 20230104
  20. BENTYL [Concomitant]
     Active Substance: DICYCLOMINE HYDROCHLORIDE
     Indication: Product used for unknown indication
     Dosage: TAKE 1 CAPSULE BY MOUTH 4 TIMES DAILY PRN BOWEL SPASM/ ABD CRAMP- ORAL
     Route: 048
     Dates: start: 20221122
  21. ATIVAN [Concomitant]
     Active Substance: LORAZEPAM
     Indication: Anxiety
     Dosage: TAKE 1/2 TABLET BY MOUTH EVERY DAY AT BEDTIME AND TAKE 1 TABLET BY MOUTH EVERY DAY AS NEEDED FOR ANX
     Route: 048
     Dates: start: 20230131
  22. PRILOSEC [Concomitant]
     Active Substance: OMEPRAZOLE MAGNESIUM
     Indication: Product used for unknown indication
     Route: 048
     Dates: start: 20221121
  23. DECADRON [Concomitant]
     Active Substance: DEXAMETHASONE
     Indication: Product used for unknown indication
     Route: 048
     Dates: start: 20221224, end: 20221230
  24. TUBERCULIN NOS [Concomitant]
     Active Substance: TUBERCULIN PURIFIED PROTEIN DERIVATIVE
     Indication: Product used for unknown indication
     Dosage: SYRINGE WITH NEEDLE, DISP, (TUBERCULIN SYRINGE) 1 ML 25-GAUGE X 1^ MISC SYRINGE. USE WITH B12 TO INJ
     Dates: start: 20210514

REACTIONS (1)
  - COVID-19 [Recovering/Resolving]
